FAERS Safety Report 8695683 (Version 2)
Quarter: 2012Q4

REPORT INFORMATION
  Report Type: 
  Country: US (occurrence: US)
  Receive Date: 20120731
  Receipt Date: 20120903
  Transmission Date: 20130627
  Serious: Yes (Other)
  Sender: FDA-Public Use
  Company Number: US-PFIZER INC-2012181556

PATIENT
  Age: 1 Year
  Sex: Male

DRUGS (1)
  1. EPIPEN JR [Suspect]
     Dosage: UNK
     Dates: start: 20120724

REACTIONS (4)
  - Product quality issue [Unknown]
  - Injection site injury [Unknown]
  - Injection site bruising [Unknown]
  - Injection site pain [Unknown]
